FAERS Safety Report 7359146-0 (Version None)
Quarter: 2011Q1

REPORT INFORMATION
  Report Type: 
  Country: None (occurrence: None)
  Receive Date: 20110317
  Receipt Date: 20100505
  Transmission Date: 20110831
  Serious: Yes (Disabling, Congenital Anomaly)
  Sender: FDA-Public Use
  Company Number: JP-ASTRAZENECA-2010SE22082

PATIENT
  Age: 0 Year
  Sex: Male
  Weight: 2 kg

DRUGS (4)
  1. CANDESARTAN CILEXETIL [Suspect]
     Indication: CARDIAC FAILURE
     Route: 064
  2. METOPROLOL [Concomitant]
     Indication: CARDIAC FAILURE
     Route: 064
  3. RAMIPRIL [Concomitant]
     Indication: CARDIAC FAILURE
     Route: 064
  4. ASPIRIN [Concomitant]
     Indication: CARDIAC FAILURE
     Route: 064

REACTIONS (3)
  - ULTRASOUND ANTENATAL SCREEN ABNORMAL [None]
  - PREMATURE BABY [None]
  - PATENT DUCTUS ARTERIOSUS [None]
